FAERS Safety Report 24881867 (Version 2)
Quarter: 2025Q2

REPORT INFORMATION
  Report Type: Spontaneous
  Country: GB (occurrence: GB)
  Receive Date: 20250124
  Receipt Date: 20250411
  Transmission Date: 20250716
  Serious: Yes (Other)
  Sender: ROCHE
  Company Number: GB-ROCHE-10000182359

PATIENT
  Age: 85 Year
  Sex: Female

DRUGS (2)
  1. VABYSMO [Suspect]
     Active Substance: FARICIMAB-SVOA
     Indication: Neovascular age-related macular degeneration
     Route: 065
     Dates: start: 20240125
  2. VABYSMO [Suspect]
     Active Substance: FARICIMAB-SVOA
     Route: 065

REACTIONS (6)
  - Iridocyclitis [Recovering/Resolving]
  - Retinal pigment epithelial tear [Unknown]
  - Corneal dystrophy [Unknown]
  - Corneal endotheliitis [Unknown]
  - Scleritis [Recovering/Resolving]
  - Autoimmune disorder [Unknown]

NARRATIVE: CASE EVENT DATE: 20240911
